FAERS Safety Report 6986494-6 (Version None)
Quarter: 2010Q3

REPORT INFORMATION
  Report Type: 
  Country: None (occurrence: None)
  Receive Date: 20100913
  Receipt Date: 20100827
  Transmission Date: 20110219
  Serious: Yes (Hospitalization)
  Sender: FDA-Public Use
  Company Number: 2009000186

PATIENT
  Age: 67 Year
  Sex: Female

DRUGS (10)
  1. ERLOTINIB HYDROCHLORIDE [Suspect]
     Indication: NON-SMALL CELL LUNG CANCER
     Dosage: (150 MG, QD), ORAL
     Route: 048
     Dates: start: 20081120, end: 20081215
  2. SUNITINIB (TABLET) [Suspect]
     Indication: NON-SMALL CELL LUNG CANCER
     Dosage: (37.5 MG, QD), ORAL
     Route: 048
     Dates: start: 20081120, end: 20081215
  3. REPAGLINIDE [Concomitant]
  4. NEBIVOLOL HCL [Concomitant]
  5. TIOTROPIUM [Concomitant]
  6. ENOXAPARIN SODIUM [Concomitant]
  7. SERETIDE (SERETIDE) [Concomitant]
  8. ALLOPURINOL [Concomitant]
  9. SIMVASTATIN [Concomitant]
  10. CO- INHIBACE [Concomitant]

REACTIONS (8)
  - DECREASED APPETITE [None]
  - DIZZINESS [None]
  - FEEDING DISORDER [None]
  - FUNGAL INFECTION [None]
  - GENERAL PHYSICAL HEALTH DETERIORATION [None]
  - RENAL FAILURE ACUTE [None]
  - VOMITING [None]
  - WEIGHT DECREASED [None]
